FAERS Safety Report 5377087-5 (Version None)
Quarter: 2007Q2

REPORT INFORMATION
  Report Type: 
  Country: None (occurrence: None)
  Receive Date: 20070628
  Receipt Date: 20070628
  Transmission Date: 20071010
  Serious: Yes (Other)
  Sender: FDA-Public Use
  Company Number: None

PATIENT
  Age: 50 Year
  Sex: Female
  Weight: 136.0791 kg

DRUGS (1)
  1. VYTORIN [Suspect]
     Dosage: 10/80 ONCE PER DAY ONCE PER DAY PO
     Route: 048
     Dates: start: 20050101, end: 20070617

REACTIONS (6)
  - BACK PAIN [None]
  - DEPRESSION [None]
  - JOINT SWELLING [None]
  - LARGE INTESTINAL HAEMORRHAGE [None]
  - MENTAL DISORDER [None]
  - PAIN [None]
